FAERS Safety Report 6094946-9 (Version None)
Quarter: 2009Q1

REPORT INFORMATION
  Report Type: 
  Country: None (occurrence: None)
  Receive Date: 20090225
  Receipt Date: 20090209
  Transmission Date: 20090719
  Serious: Yes (Other)
  Sender: FDA-Public Use
  Company Number: 2009S1001748

PATIENT
  Age: 62 Year
  Sex: Female

DRUGS (7)
  1. PHOSPHOSODA FLAVOR NOT SPECIFIED [Suspect]
     Indication: COLONOSCOPY
     Dosage: 90 ML;TOTAL;PO
     Route: 048
     Dates: start: 20070913, end: 20070913
  2. SYNTHROID [Concomitant]
  3. PROTONIX [Concomitant]
  4. ACTONEL [Concomitant]
  5. LIPITOR [Concomitant]
  6. LISINOPRIL [Concomitant]
  7. CELEXA [Concomitant]

REACTIONS (1)
  - RENAL FAILURE CHRONIC [None]
